FAERS Safety Report 4871413-9 (Version None)
Quarter: 2006Q1

REPORT INFORMATION
  Report Type: 
  Country: None (occurrence: None)
  Receive Date: 20060103
  Receipt Date: 20050914
  Transmission Date: 20060701
  Serious: Yes (Death, Hospitalization)
  Sender: FDA-Public Use
  Company Number: US-MERCK-0509USA02093

PATIENT
  Sex: Male

DRUGS (15)
  1. VIOXX [Suspect]
     Indication: OSTEOARTHRITIS
     Route: 048
     Dates: start: 20030116, end: 20030915
  2. VIOXX [Suspect]
     Route: 048
     Dates: start: 20030116, end: 20030915
  3. LIPITOR [Concomitant]
     Indication: HYPERLIPIDAEMIA
     Route: 065
  4. METOPROLOL TARTRATE [Concomitant]
     Indication: HYPERTENSION
     Route: 065
  5. NIFEDIPINE [Concomitant]
     Route: 065
  6. ENALAPRIL COMP [Concomitant]
     Route: 065
  7. LOPRESSOR [Concomitant]
     Route: 065
  8. GLIPIZIDE [Concomitant]
     Route: 065
  9. VANCOMYCIN [Concomitant]
     Route: 065
  10. AMBIEN [Concomitant]
     Route: 065
  11. MILK OF MAGNESIA TAB [Concomitant]
     Route: 065
  12. TYLENOL [Concomitant]
     Route: 065
  13. PROTONIX [Concomitant]
     Route: 065
  14. ZOCOR [Concomitant]
     Route: 065
  15. KEFLEX [Concomitant]
     Route: 065

REACTIONS (9)
  - ATELECTASIS [None]
  - CELLULITIS [None]
  - CELLULITIS STAPHYLOCOCCAL [None]
  - DYSPNOEA [None]
  - LYMPHADENOPATHY [None]
  - MOTOR DYSFUNCTION [None]
  - PULMONARY EMBOLISM [None]
  - SEPSIS [None]
  - THYROID NEOPLASM [None]
